FAERS Safety Report 15081981 (Version 1)
Quarter: 2018Q2

REPORT INFORMATION
  Report Type: Spontaneous
  Country: AT (occurrence: AT)
  Receive Date: 20180628
  Receipt Date: 20180628
  Transmission Date: 20180711
  Serious: Yes (Hospitalization, Other)
  Sender: FDA-Public Use
  Company Number: AT-ASTELLAS-2002000356-FG

PATIENT
  Age: 51 Year
  Sex: Female

DRUGS (17)
  1. FUSIDIC ACID [Suspect]
     Active Substance: FUSIDIC ACID
     Route: 065
     Dates: start: 200101
  2. FELODIPINE. [Concomitant]
     Active Substance: FELODIPINE
     Indication: PRODUCT USED FOR UNKNOWN INDICATION
     Route: 065
  3. TACROLIMUS. [Suspect]
     Active Substance: TACROLIMUS
     Indication: RENAL AND PANCREAS TRANSPLANT
     Route: 048
     Dates: start: 19981111
  4. SIMVASTATIN. [Interacting]
     Active Substance: SIMVASTATIN
     Route: 048
     Dates: start: 199910
  5. TACROLIMUS. [Interacting]
     Active Substance: TACROLIMUS
     Route: 048
     Dates: start: 19981111
  6. ASPIRIN. [Concomitant]
     Active Substance: ASPIRIN
     Indication: PRODUCT USED FOR UNKNOWN INDICATION
     Route: 065
  7. FUSIDIC ACID [Suspect]
     Active Substance: FUSIDIC ACID
     Route: 065
     Dates: start: 199910
  8. INSULIN [Concomitant]
     Active Substance: INSULIN NOS
     Indication: PRODUCT USED FOR UNKNOWN INDICATION
     Dosage: UNK UNK, UNKNOWN FREQ.
     Route: 065
  9. TACROLIMUS. [Interacting]
     Active Substance: TACROLIMUS
     Route: 048
  10. TACROLIMUS. [Interacting]
     Active Substance: TACROLIMUS
     Route: 048
     Dates: start: 199906
  11. TACROLIMUS. [Interacting]
     Active Substance: TACROLIMUS
     Route: 048
  12. FUSIDIC ACID [Suspect]
     Active Substance: FUSIDIC ACID
     Indication: HYPERLIPIDAEMIA
     Route: 065
     Dates: start: 199906
  13. TACROLIMUS. [Interacting]
     Active Substance: TACROLIMUS
     Route: 048
     Dates: start: 200003
  14. SIMVASTATIN. [Interacting]
     Active Substance: SIMVASTATIN
     Indication: HYPERLIPIDAEMIA
     Route: 048
     Dates: start: 199906
  15. CITALOPRAM [Concomitant]
     Active Substance: CITALOPRAM HYDROBROMIDE
     Indication: PRODUCT USED FOR UNKNOWN INDICATION
     Route: 065
  16. PREDNISOLONE. [Concomitant]
     Active Substance: PREDNISOLONE
     Indication: PRODUCT USED FOR UNKNOWN INDICATION
     Route: 065
  17. AZATHIOPRINE. [Concomitant]
     Active Substance: AZATHIOPRINE
     Indication: PRODUCT USED FOR UNKNOWN INDICATION
     Route: 065

REACTIONS (11)
  - Drug interaction [Recovered/Resolved]
  - Off label use [Unknown]
  - Ischaemic stroke [Unknown]
  - Pancreatitis haemorrhagic [Unknown]
  - Osteomyelitis [Unknown]
  - Cytomegalovirus infection [Unknown]
  - Rhabdomyolysis [Recovered/Resolved]
  - Soft tissue infection [Unknown]
  - Renal impairment [Recovered/Resolved]
  - Product use in unapproved indication [Unknown]
  - Hemianopia [Unknown]

NARRATIVE: CASE EVENT DATE: 199906
